FAERS Safety Report 12333430 (Version 1)
Quarter: 2016Q2

REPORT INFORMATION
  Report Type: Spontaneous
  Country: US (occurrence: US)
  Receive Date: 20160504
  Receipt Date: 20160504
  Transmission Date: 20160815
  Serious: No
  Sender: FDA-Public Use
  Company Number: US-ROCHE-1672584

PATIENT
  Sex: Female
  Weight: 89.44 kg

DRUGS (5)
  1. VICKS NYQUIL [Concomitant]
     Active Substance: ACETAMINOPHEN\DEXTROMETHORPHAN HYDROBROMIDE\DOXYLAMINE SUCCINATE
     Indication: COUGH
  2. ESBRIET [Suspect]
     Active Substance: PIRFENIDONE
     Indication: IDIOPATHIC PULMONARY FIBROSIS
     Route: 048
     Dates: start: 20151109
  3. DAYQUIL COUGH [Concomitant]
     Indication: COUGH
  4. ROBITUSSIN (DEXTROMETHORPHAN HYDROBROMIDE) [Concomitant]
     Indication: COUGH
  5. SUDAFED (UNITED STATES) [Concomitant]
     Indication: COUGH

REACTIONS (1)
  - Nasopharyngitis [Unknown]
